FAERS Safety Report 4924655-8 (Version None)
Quarter: 2006Q1

REPORT INFORMATION
  Report Type: 
  Country: None (occurrence: None)
  Receive Date: 20060222
  Receipt Date: 20060206
  Transmission Date: 20060701
  Serious: Yes (Hospitalization)
  Sender: FDA-Public Use
  Company Number: 109002ISR

PATIENT
  Age: 66 Year
  Sex: Male

DRUGS (8)
  1. METHOTREXATE [Suspect]
     Indication: RHEUMATOID ARTHRITIS
     Dosage: 12 MILLIGRAM QW ORAL
     Route: 048
  2. HUMIRA [Suspect]
     Indication: RHEUMATOID ARTHRITIS
     Dosage: SUBCUTANEOUS
     Route: 058
     Dates: start: 20041201, end: 20051215
  3. FELODIPINE [Concomitant]
  4. NAPROXEN [Concomitant]
  5. CITODON [Concomitant]
  6. LACTULOSE [Concomitant]
  7. FUROSEMIDE [Concomitant]
  8. TERAZOSIN HYDROCHLORIDE [Concomitant]

REACTIONS (2)
  - ARTHRITIS BACTERIAL [None]
  - SEPSIS [None]
